FAERS Safety Report 8958577 (Version 1)
Quarter: 2012Q4

REPORT INFORMATION
  Report Type: Spontaneous
  Country: US (occurrence: None)
  Receive Date: 20121205
  Receipt Date: 20121205
  Transmission Date: 20130627
  Serious: Yes (Hospitalization)
  Sender: FDA-Public Use
  Company Number: None

PATIENT
  Age: 68 Year
  Sex: Male
  Weight: 65.77 kg

DRUGS (1)
  1. PHENYTOIN ER [Suspect]
     Indication: EPILEPSY

REACTIONS (2)
  - Convulsion [None]
  - Anticonvulsant drug level decreased [None]
